FAERS Safety Report 8724882 (Version 2)
Quarter: 2015Q2

REPORT INFORMATION
  Report Type: Report from Study
  Country: US (occurrence: US)
  Receive Date: 20120815
  Receipt Date: 20150625
  Transmission Date: 20150821
  Serious: Yes (Hospitalization)
  Sender: FDA-Public Use
  Company Number: US-ROCHE-1100439

PATIENT
  Age: 67 Year
  Sex: Male

DRUGS (11)
  1. NITROGLYCERIN DRIP [Concomitant]
     Route: 042
  2. ACTIVASE [Suspect]
     Active Substance: ALTEPLASE
     Indication: ACUTE MYOCARDIAL INFARCTION
     Dosage: 10 CC SLOW IUP
     Route: 042
  3. ACTIVASE [Suspect]
     Active Substance: ALTEPLASE
     Dosage: 50 CC/HOUR
     Route: 042
  4. LIDOCAINE. [Concomitant]
     Active Substance: LIDOCAINE
     Dosage: 2MG/MIN
     Route: 041
  5. HEPARIN SODIUM. [Concomitant]
     Active Substance: HEPARIN SODIUM
     Dosage: 5000 UNITS
     Route: 040
  6. HEPARIN SODIUM. [Concomitant]
     Active Substance: HEPARIN SODIUM
     Dosage: 20000 UNITS
     Route: 040
  7. ACTIVASE [Suspect]
     Active Substance: ALTEPLASE
     Dosage: 20 CC/HOUR
     Route: 042
  8. NITROGLYCERIN DRIP [Concomitant]
     Dosage: 20 MICROGRAM/MIN
     Route: 041
  9. LIDOCAINE. [Concomitant]
     Active Substance: LIDOCAINE
     Route: 040
  10. LIDOCAINE. [Concomitant]
     Active Substance: LIDOCAINE
     Dosage: TOTAL 150 MG ADMINISTERED
     Route: 040
  11. HEPARIN SODIUM. [Concomitant]
     Active Substance: HEPARIN SODIUM
     Dosage: 40 CC PER HOUR
     Route: 065

REACTIONS (6)
  - Pallor [Not Recovered/Not Resolved]
  - Asthenia [Unknown]
  - Dry skin [Unknown]
  - Eructation [Unknown]
  - Chest discomfort [Not Recovered/Not Resolved]
  - Restlessness [Not Recovered/Not Resolved]

NARRATIVE: CASE EVENT DATE: 19890324
